FAERS Safety Report 4427908-5 (Version None)
Quarter: 2004Q3

REPORT INFORMATION
  Report Type: 
  Country: None (occurrence: None)
  Receive Date: 20040813
  Receipt Date: 20040730
  Transmission Date: 20050211
  Serious: Yes (Hospitalization, Other)
  Sender: FDA-Public Use
  Company Number: 2004044691

PATIENT
  Sex: Female

DRUGS (8)
  1. CADUET [Suspect]
     Indication: CORONARY ARTERY DISEASE
     Dosage: 5/10 MILLIGRAM, ORAL
     Route: 048
     Dates: start: 20040416, end: 20040520
  2. CADUET [Suspect]
     Indication: HYPERTENSION
     Dosage: 5/10 MILLIGRAM, ORAL
     Route: 048
     Dates: start: 20040416, end: 20040520
  3. ATORVASTATIN (ATORVASTATIN) [Concomitant]
  4. AMLODIPINE BESYLATE [Concomitant]
  5. ACETAMINOPHEN [Concomitant]
  6. ATENOLOL [Concomitant]
  7. ISOSORBIDE MONONITRATE [Concomitant]
  8. ASPIRIN [Concomitant]

REACTIONS (6)
  - ALANINE AMINOTRANSFERASE INCREASED [None]
  - ASTHENIA [None]
  - BLOOD ALKALINE PHOSPHATASE INCREASED [None]
  - CHILLS [None]
  - JAUNDICE [None]
  - PYREXIA [None]
